FAERS Safety Report 9518774 (Version 1)
Quarter: 2013Q3

REPORT INFORMATION
  Report Type: Spontaneous
  Country: US (occurrence: US)
  Receive Date: 20130912
  Receipt Date: 20130912
  Transmission Date: 20140515
  Serious: Yes (Other)
  Sender: FDA-Public Use
  Company Number: US-BAYER-2013-108356

PATIENT
  Age: 44 Year
  Sex: Male
  Weight: 90.7 kg

DRUGS (4)
  1. ALKA-SELTZER PLUS COLD + FLU FORMULA DAY/NIGHT LIQUID GEL COMBI DA [Suspect]
     Dosage: 8 LIQUID GELS IN 24 HOURS
     Route: 048
     Dates: start: 201309
  2. ALKA-SELTZER PLUS COLD + FLU FORMULA DAY/NIGHT LIQUID GEL COMBI NI [Suspect]
     Indication: NASOPHARYNGITIS
     Dosage: 6 LIQUID GELS IN 24 HOURS
     Route: 048
     Dates: start: 201309
  3. IBUPROFEN [Concomitant]
     Indication: HEADACHE
  4. ALKA-SELTZER PLUS COLD MEDICINE ORIGINAL [Concomitant]
     Dosage: 2 DF, UNK

REACTIONS (5)
  - Confusional state [Recovered/Resolved]
  - Dysarthria [Recovered/Resolved]
  - Abdominal pain upper [Recovered/Resolved]
  - Somnolence [Recovered/Resolved]
  - Extra dose administered [None]
